FAERS Safety Report 9648451 (Version 2)
Quarter: 2013Q4

REPORT INFORMATION
  Report Type: Spontaneous
  Country: US (occurrence: None)
  Receive Date: 20131024
  Receipt Date: 20131206
  Transmission Date: 20140711
  Serious: Yes (Other)
  Sender: FDA-Public Use
  Company Number: AUR-APL-2013-08684

PATIENT
  Age: 46 Year
  Sex: Male

DRUGS (4)
  1. RISPERIDONE [Suspect]
     Indication: SCHIZOAFFECTIVE DISORDER
  2. ARIPIPRAZOLE [Suspect]
     Indication: SCHIZOAFFECTIVE DISORDER
  3. BUPROPION [Suspect]
     Indication: SCHIZOAFFECTIVE DISORDER
  4. LITHIUM (LITHIUM) [Suspect]
     Indication: SCHIZOAFFECTIVE DISORDER

REACTIONS (6)
  - Neuroleptic malignant syndrome [None]
  - Abnormal behaviour [None]
  - Mutism [None]
  - Depression [None]
  - Agitation [None]
  - Drug ineffective [None]
